FAERS Safety Report 6675323-6 (Version None)
Quarter: 2010Q2

REPORT INFORMATION
  Report Type: 
  Country: None (occurrence: None)
  Receive Date: 20100409
  Receipt Date: 20100319
  Transmission Date: 20101027
  Serious: No
  Sender: FDA-Public Use
  Company Number: A0843502A

PATIENT
  Age: 80 Year
  Sex: Female
  Weight: 69.5 kg

DRUGS (8)
  1. TYKERB [Suspect]
     Indication: BREAST CANCER
     Dosage: 1250MG PER DAY
     Route: 048
     Dates: start: 20091218
  2. ABRAXANE [Concomitant]
     Indication: METASTASES TO LIVER
     Route: 042
     Dates: start: 20090129
  3. HEART MEDICATION [Concomitant]
  4. ASPIRIN [Concomitant]
     Route: 048
  5. POTASSIUM [Concomitant]
     Dosage: 10MEQ THREE TIMES PER DAY
     Route: 048
  6. VITAMINS [Concomitant]
  7. LIALDA [Concomitant]
  8. NEURONTIN [Concomitant]
     Dates: start: 20090929

REACTIONS (2)
  - DIARRHOEA [None]
  - HYPOAESTHESIA [None]
